FAERS Safety Report 11003050 (Version 1)
Quarter: 2015Q2

REPORT INFORMATION
  Report Type: Spontaneous
  Country: US (occurrence: None)
  Receive Date: 20150408
  Receipt Date: 20150408
  Transmission Date: 20150821
  Serious: Yes (Death)
  Sender: FDA-Public Use
  Company Number: None

PATIENT
  Age: 73 Year
  Sex: Female

DRUGS (1)
  1. INTRON A [Suspect]
     Active Substance: INTERFERON ALFA-2B
     Indication: PANCREATIC CARCINOMA
     Dosage: 300,000 UNITS INTRADERMAL THREE TIMES WEEKLY
     Route: 023
     Dates: start: 20150311, end: 20150401

REACTIONS (2)
  - Malignant neoplasm progression [None]
  - Pancreatic carcinoma [None]

NARRATIVE: CASE EVENT DATE: 20150401
